FAERS Safety Report 6276360-6 (Version None)
Quarter: 2009Q3

REPORT INFORMATION
  Report Type: 
  Country: None (occurrence: None)
  Receive Date: 20090722
  Receipt Date: 20090718
  Transmission Date: 20100115
  Serious: Yes (Death)
  Sender: FDA-Public Use
  Company Number: PHHY2009BR29845

PATIENT
  Sex: Female

DRUGS (2)
  1. LESCOL XL [Suspect]
     Dosage: 80 MG, UNK
     Route: 048
  2. ZELMAC [Suspect]
     Dosage: 6 MG, UNK
     Route: 048

REACTIONS (1)
  - DEATH [None]
